FAERS Safety Report 5643315-1 (Version None)
Quarter: 2008Q1

REPORT INFORMATION
  Report Type: 
  Country: None (occurrence: None)
  Receive Date: 20080228
  Receipt Date: 20080222
  Transmission Date: 20080703
  Serious: Yes (Death)
  Sender: FDA-Public Use
  Company Number: JABEL42396

PATIENT

DRUGS (2)
  1. HALDOL IV [Suspect]
     Indication: AGITATION
     Dosage: 4 AMPOULES IN 1 HOUR
     Route: 041
  2. LEXOTAN [Suspect]
     Indication: DRUG USE FOR UNKNOWN INDICATION

REACTIONS (1)
  - PULMONARY OEDEMA [None]
